FAERS Safety Report 11248276 (Version 1)
Quarter: 2015Q3

REPORT INFORMATION
  Report Type: Spontaneous
  Country: US (occurrence: US)
  Receive Date: 20150708
  Receipt Date: 20150708
  Transmission Date: 20151125
  Serious: No
  Sender: FDA-Public Use
  Company Number: US-ELI_LILLY_AND_COMPANY-US200810001645

PATIENT
  Age: 50 Year
  Sex: Male

DRUGS (2)
  1. LUNESTA [Concomitant]
     Active Substance: ESZOPICLONE
     Dosage: UNK, UNKNOWN
     Route: 048
  2. PROZAC [Suspect]
     Active Substance: FLUOXETINE HYDROCHLORIDE
     Dosage: UNK, UNKNOWN
     Route: 065
     Dates: start: 200712

REACTIONS (2)
  - Transient acantholytic dermatosis [Unknown]
  - No reaction on previous exposure to drug [Unknown]

NARRATIVE: CASE EVENT DATE: 2008
